FAERS Safety Report 12781937 (Version 2)
Quarter: 2016Q4

REPORT INFORMATION
  Report Type: Spontaneous
  Country: US (occurrence: US)
  Receive Date: 20160926
  Receipt Date: 20161004
  Transmission Date: 20170207
  Serious: No
  Sender: FDA-Public Use
  Company Number: US-009507513-1609USA001462

PATIENT
  Sex: Female

DRUGS (3)
  1. LEVOTHYROXINE SODIUM. [Concomitant]
     Active Substance: LEVOTHYROXINE SODIUM
     Dosage: UNK
  2. BEXAROTENE. [Concomitant]
     Active Substance: BEXAROTENE
     Dosage: UNK
  3. INTRON A [Suspect]
     Active Substance: INTERFERON ALFA-2B
     Indication: CARCINOID TUMOUR
     Dosage: 3 MILLION UNITS, TIW, ROUTE OF ADMINISTRATION REPORTED AS INJ
     Dates: start: 201602

REACTIONS (4)
  - Feeling cold [Not Recovered/Not Resolved]
  - Skin exfoliation [Unknown]
  - Feeling abnormal [Not Recovered/Not Resolved]
  - Cold sweat [Unknown]

NARRATIVE: CASE EVENT DATE: 2016
